FAERS Safety Report 4813131-9 (Version None)
Quarter: 2005Q4

REPORT INFORMATION
  Report Type: 
  Country: None (occurrence: None)
  Receive Date: 20051026
  Receipt Date: 20051006
  Transmission Date: 20060501
  Serious: Yes (Other)
  Sender: FDA-Public Use
  Company Number: USA0510110216

PATIENT
  Age: 44 Year
  Sex: Female

DRUGS (12)
  1. GEMZAR [Suspect]
     Indication: BREAST CANCER METASTATIC
     Dosage: 1500 MG/M2 OTHER
     Dates: start: 20041101, end: 20051003
  2. HERCEPTIN [Concomitant]
  3. DECADRON [Concomitant]
  4. PERCOCET [Concomitant]
  5. DIFLUCAN (FLUCONAZOLE) [Concomitant]
  6. DILAUDID [Concomitant]
  7. NEUPOGEN [Concomitant]
  8. RESTORIL [Concomitant]
  9. XANAX [Concomitant]
  10. PROTONIX [Concomitant]
  11. COUMADIN [Concomitant]
  12. LEXAPRO [Concomitant]

REACTIONS (4)
  - DIFFUSE ALVEOLAR DAMAGE [None]
  - METASTASES TO CENTRAL NERVOUS SYSTEM [None]
  - PULMONARY FIBROSIS [None]
  - PULMONARY TOXICITY [None]
